FAERS Safety Report 7594458-7 (Version None)
Quarter: 2011Q3

REPORT INFORMATION
  Report Type: 
  Country: None (occurrence: None)
  Receive Date: 20110707
  Receipt Date: 20110628
  Transmission Date: 20111222
  Serious: Yes (Life-Threatening, Hospitalization, Disabling)
  Sender: FDA-Public Use
  Company Number: FR-AMGEN-FRASP2010009085

PATIENT
  Age: 77 Year
  Sex: Male
  Weight: 65 kg

DRUGS (2)
  1. ENBREL [Suspect]
     Indication: PRODUCT USED FOR UNKNOWN INDICATION
     Dosage: 50 MG, WEEKLY
     Route: 058
     Dates: start: 20070101, end: 20101201
  2. METHOTREXATE [Concomitant]
     Indication: POLYARTHRITIS
     Dosage: 10 MG, WEEKLY
     Route: 048
     Dates: start: 20040501

REACTIONS (1)
  - BLADDER CANCER [None]
